FAERS Safety Report 7919817-1 (Version None)
Quarter: 2011Q4

REPORT INFORMATION
  Report Type: 
  Country: None (occurrence: None)
  Receive Date: 20111117
  Receipt Date: 20111117
  Transmission Date: 20120403
  Serious: No
  Sender: FDA-Public Use
  Company Number: None

PATIENT
  Age: 53 Year
  Sex: Female
  Weight: 50.802 kg

DRUGS (1)
  1. LUVOX CR [Suspect]
     Indication: ANXIETY
     Dosage: 100 MG
     Route: 048

REACTIONS (5)
  - DRY MOUTH [None]
  - DYSGEUSIA [None]
  - NAUSEA [None]
  - YAWNING [None]
  - INSOMNIA [None]
